FAERS Safety Report 23205607 (Version 1)
Quarter: 2023Q4

REPORT INFORMATION
  Report Type: Other
  Country: None (occurrence: TR)
  Receive Date: 20231120
  Receipt Date: 20231120
  Transmission Date: 20240110
  Serious: Yes (Hospitalization)
  Sender: FDA-Public Use
  Company Number: TR-OrBion Pharmaceuticals Private Limited-2148482

PATIENT
  Age: 15 Year
  Sex: Female

DRUGS (1)
  1. AMLODIPINE BESYLATE [Suspect]
     Active Substance: AMLODIPINE BESYLATE
     Route: 065

REACTIONS (11)
  - Distributive shock [Recovered/Resolved]
  - Vasoplegia syndrome [Recovered/Resolved]
  - Lactic acidosis [Recovered/Resolved]
  - Lethargy [Recovered/Resolved]
  - Hypotension [Recovered/Resolved]
  - Heart rate increased [Recovered/Resolved]
  - Respiratory rate increased [Recovered/Resolved]
  - Body temperature decreased [Recovered/Resolved]
  - Peripheral coldness [Recovered/Resolved]
  - Oliguria [Recovered/Resolved]
  - Intentional overdose [Unknown]
